FAERS Safety Report 7700945-0 (Version None)
Quarter: 2011Q3

REPORT INFORMATION
  Report Type: 
  Country: None (occurrence: None)
  Receive Date: 20110822
  Receipt Date: 20110816
  Transmission Date: 20111222
  Serious: Yes (Other)
  Sender: FDA-Public Use
  Company Number: US-PFIZER INC-2011188983

PATIENT
  Sex: Female
  Weight: 59.864 kg

DRUGS (17)
  1. LYRICA [Suspect]
     Indication: TRIGEMINAL NEURALGIA
     Dosage: 75 MG, 2X/DAY
     Route: 048
     Dates: start: 20060101, end: 20110725
  2. TIAZAC [Concomitant]
     Dosage: UNK
  3. LASIX [Concomitant]
     Dosage: UNK
  4. LYRICA [Suspect]
     Dosage: 25 MG, 2X/DAY
     Dates: start: 20110713
  5. XALATAN [Concomitant]
     Indication: EYE DISORDER
     Dosage: UNK
  6. LISINOPRIL [Concomitant]
     Dosage: UNK
  7. LYRICA [Suspect]
     Dosage: 50 MG, 2X/DAY
  8. GABAPENTIN [Suspect]
     Indication: HERPES ZOSTER
     Dosage: UNK
     Dates: start: 20070101
  9. COUMADIN [Concomitant]
     Dosage: UNK
  10. SYNTHROID [Concomitant]
     Dosage: UNK
  11. ADVAIR DISKUS 100/50 [Concomitant]
     Dosage: UNK
  12. METOPROLOL [Concomitant]
     Dosage: UNK
  13. POTASSIUM [Concomitant]
     Dosage: UNK
  14. MULTI-VITAMINS [Concomitant]
     Dosage: UNK
  15. CALCIUM [Concomitant]
     Dosage: UNK
  16. TEMAZEPAM [Concomitant]
     Indication: SLEEP DISORDER
     Dosage: 15 MG
  17. FISH OIL [Concomitant]
     Dosage: UNK

REACTIONS (2)
  - CONFUSIONAL STATE [None]
  - DRUG INTOLERANCE [None]
